FAERS Safety Report 9282603 (Version 1)
Quarter: 2013Q2

REPORT INFORMATION
  Report Type: Spontaneous
  Country: AU (occurrence: AU)
  Receive Date: 20130510
  Receipt Date: 20130510
  Transmission Date: 20140414
  Serious: Yes (Hospitalization)
  Sender: FDA-Public Use
  Company Number: PHHY2013AU044904

PATIENT
  Age: 28 Year
  Sex: Female

DRUGS (1)
  1. PARACETAMOL [Suspect]
     Dosage: 1 G, QID DAILY

REACTIONS (7)
  - Liver function test abnormal [Recovering/Resolving]
  - Metabolic acidosis [Recovering/Resolving]
  - Anion gap increased [Recovering/Resolving]
  - Vomiting [Recovering/Resolving]
  - Abdominal pain [Recovering/Resolving]
  - Pyroglutamate increased [Recovering/Resolving]
  - Diarrhoea [Recovering/Resolving]
